FAERS Safety Report 21688595 (Version 3)
Quarter: 2023Q1

REPORT INFORMATION
  Report Type: Spontaneous
  Country: ES (occurrence: ES)
  Receive Date: 20221206
  Receipt Date: 20230203
  Transmission Date: 20230417
  Serious: Yes (Hospitalization, Other)
  Sender: FDA-Public Use
  Company Number: ES-BIOVITRUM-2022ES14229

PATIENT
  Age: 83 Year
  Sex: Male

DRUGS (6)
  1. DOPTELET [Suspect]
     Active Substance: AVATROMBOPAG MALEATE
     Indication: Immune thrombocytopenia
     Dates: start: 20220914, end: 20221018
  2. DOPTELET [Suspect]
     Active Substance: AVATROMBOPAG MALEATE
     Dates: start: 20220921
  3. DOPTELET [Suspect]
     Active Substance: AVATROMBOPAG MALEATE
     Dates: start: 20220928
  4. LOSARTAN [Concomitant]
     Active Substance: LOSARTAN
  5. AMLODIPINE [Concomitant]
     Active Substance: AMLODIPINE BESYLATE
     Dosage: AMLODIPINE 5 MG 0.5TABLET/DAY
  6. CHLORTHALIDONE [Concomitant]
     Active Substance: CHLORTHALIDONE

REACTIONS (2)
  - Pulmonary embolism [Recovered/Resolved]
  - Pulmonary infarction [Recovered/Resolved]

NARRATIVE: CASE EVENT DATE: 20221018
